FAERS Safety Report 20772073 (Version 1)
Quarter: 2022Q2

REPORT INFORMATION
  Report Type: Spontaneous
  Country: CN (occurrence: CN)
  Receive Date: 20220501
  Receipt Date: 20220501
  Transmission Date: 20220721
  Serious: Yes (Other)
  Sender: FDA-Public Use
  Company Number: CN-BAXTER-2022BAX009266

PATIENT
  Age: 51 Year
  Sex: Female

DRUGS (2)
  1. MANNITOL [Suspect]
     Active Substance: MANNITOL
     Indication: Electrolyte imbalance
     Route: 041
     Dates: start: 20220401, end: 20220408
  2. MANNITOL [Suspect]
     Active Substance: MANNITOL
     Indication: Symptomatic treatment

REACTIONS (1)
  - Hypokalaemia [Recovered/Resolved]

NARRATIVE: CASE EVENT DATE: 20220402
